FAERS Safety Report 14394595 (Version 6)
Quarter: 2018Q1

REPORT INFORMATION
  Report Type: Spontaneous
  Country: SE (occurrence: SE)
  Receive Date: 20180116
  Receipt Date: 20180322
  Transmission Date: 20180509
  Serious: Yes (Other)
  Sender: FDA-Public Use
  Company Number: SE-PFIZER INC-2018020067

PATIENT
  Age: 38 Year
  Sex: Female

DRUGS (4)
  1. INFLECTRA [Suspect]
     Active Substance: INFLIXIMAB-DYYB
     Indication: ANKYLOSING SPONDYLITIS
     Dosage: 1 MG/ML, 200 MG X1
     Route: 042
     Dates: start: 20170201, end: 20170718
  2. METHOTREXATE SODIUM. [Suspect]
     Active Substance: METHOTREXATE SODIUM
     Indication: ANKYLOSING SPONDYLITIS
     Dosage: 10 MG, WEEKLY
     Route: 048
     Dates: start: 20161109, end: 20170719
  3. ORUDIS [Concomitant]
     Active Substance: KETOPROFEN
     Dosage: UNK
     Dates: start: 20160407, end: 20170719
  4. REMSIMA [Suspect]
     Active Substance: INFLIXIMAB
     Indication: ANKYLOSING SPONDYLITIS
     Dosage: 1 MG/ML, WAS GIVEN ON TWO OCASSIONS
     Route: 065
     Dates: start: 20170104

REACTIONS (1)
  - Autoimmune hepatitis [Not Recovered/Not Resolved]

NARRATIVE: CASE EVENT DATE: 20170522
